FAERS Safety Report 4573940-0 (Version None)
Quarter: 2005Q1

REPORT INFORMATION
  Report Type: 
  Country: None (occurrence: None)
  Receive Date: 20050204
  Receipt Date: 20050126
  Transmission Date: 20050727
  Serious: Yes (Disabling, Other)
  Sender: FDA-Public Use
  Company Number: GXKR2005SE00514

PATIENT
  Age: 38 Year
  Sex: Male

DRUGS (1)
  1. METFORMIN [Suspect]
     Indication: DIABETES MELLITUS
     Dosage: ORAL
     Route: 048
     Dates: start: 20040701

REACTIONS (3)
  - BLOOD URINE PRESENT [None]
  - IMPAIRED WORK ABILITY [None]
  - NEPHROLITHIASIS [None]
